FAERS Safety Report 6929681-5 (Version None)
Quarter: 2010Q3

REPORT INFORMATION
  Report Type: 
  Country: None (occurrence: None)
  Receive Date: 20100818
  Receipt Date: 20100810
  Transmission Date: 20110219
  Serious: Yes (Life-Threatening, Other)
  Sender: FDA-Public Use
  Company Number: TR-BAYER-201035858GPV

PATIENT
  Age: 13 Year
  Sex: Male

DRUGS (10)
  1. FLUDARABINE PHOSPHATE [Suspect]
     Indication: CONGENITAL APLASTIC ANAEMIA
  2. CYCLOPHOSPHAMIDE [Suspect]
     Indication: CONGENITAL APLASTIC ANAEMIA
  3. ANTI-THYMOCYTE GLOBULIN NOS [Suspect]
     Indication: CONGENITAL APLASTIC ANAEMIA
  4. CYCLOSPORINE [Suspect]
     Indication: PROPHYLAXIS AGAINST GRAFT VERSUS HOST DISEASE
  5. METHOTREXATE [Concomitant]
     Indication: PROPHYLAXIS AGAINST GRAFT VERSUS HOST DISEASE
  6. GANCICLOVIR [Concomitant]
     Indication: CYTOMEGALOVIRUS INFECTION
  7. ACYCLOVIR [Concomitant]
  8. FLUCONAZOLE [Concomitant]
  9. TRIMETHOPRIM [Concomitant]
  10. CMV-IGG [Concomitant]
     Indication: CYTOMEGALOVIRUS INFECTION

REACTIONS (6)
  - ACUTE RESPIRATORY DISTRESS SYNDROME [None]
  - HYPERSENSITIVITY [None]
  - PNEUMONIA CYTOMEGALOVIRAL [None]
  - PULMONARY HAEMORRHAGE [None]
  - THROMBOTIC MICROANGIOPATHY [None]
  - TRANSPLANT FAILURE [None]
